FAERS Safety Report 7049324-2 (Version None)
Quarter: 2010Q4

REPORT INFORMATION
  Report Type: 
  Country: None (occurrence: None)
  Receive Date: 20101018
  Receipt Date: 20100303
  Transmission Date: 20110411
  Serious: No
  Sender: FDA-Public Use
  Company Number: A0843238A

PATIENT
  Age: 44 Year
  Sex: Male

DRUGS (2)
  1. CEFTIN [Suspect]
     Indication: SKIN INFECTION
     Dosage: 500MG TWICE PER DAY
     Route: 048
     Dates: start: 20100110, end: 20100114
  2. NO CONCURRENT MEDICATION [Concomitant]

REACTIONS (2)
  - NONSPECIFIC REACTION [None]
  - URTICARIA [None]
